FAERS Safety Report 8376598-8 (Version None)
Quarter: 2012Q2

REPORT INFORMATION
  Report Type: 
  Country: None (occurrence: None)
  Receive Date: 20120522
  Receipt Date: 20120518
  Transmission Date: 20120825
  Serious: Yes (Other)
  Sender: FDA-Public Use
  Company Number: US-PFIZER INC-2012091804

PATIENT
  Sex: Female
  Weight: 116 kg

DRUGS (8)
  1. LYRICA [Suspect]
     Indication: FIBROMYALGIA
     Dosage: 100MG IN THE MORNING/ 200MG IN THE EVENING
     Route: 048
     Dates: end: 20120301
  2. ALLEGRA [Concomitant]
     Indication: HYPERSENSITIVITY
     Dosage: UNK
  3. ALBUTEROL [Concomitant]
     Indication: ASTHMA
     Dosage: UNK
     Route: 055
  4. BENAZEPRIL HYDROCHLORIDE/HYDROCHLOROTHIAZIDE [Concomitant]
     Indication: HYPERTENSION
     Dosage: UNK
  5. BUSPIRONE [Concomitant]
     Dosage: UNK
  6. KOMBIGLYZE XR [Concomitant]
     Indication: DIABETES MELLITUS
     Dosage: 5/500 MG, UNK
  7. MAXALT [Concomitant]
     Indication: MIGRAINE
     Dosage: 10 MG, UNK
  8. OXYCODONE [Concomitant]
     Indication: BURSITIS
     Dosage: UNK

REACTIONS (1)
  - PAIN [None]
